FAERS Safety Report 6444256-2 (Version None)
Quarter: 2009Q4

REPORT INFORMATION
  Report Type: 
  Country: None (occurrence: None)
  Receive Date: 20091118
  Receipt Date: 20091112
  Transmission Date: 20100525
  Serious: Yes (Life-Threatening)
  Sender: FDA-Public Use
  Company Number: AU-ROCHE-668426

PATIENT
  Age: 85 Year
  Sex: Male

DRUGS (8)
  1. TAMIFLU [Suspect]
     Indication: DRUG USE FOR UNKNOWN INDICATION
     Route: 048
     Dates: start: 20090604, end: 20090607
  2. CECLOR [Concomitant]
     Dates: start: 20090605, end: 20090606
  3. CEFTRIAXONE [Concomitant]
     Dates: start: 20090603, end: 20090608
  4. DILATREND [Concomitant]
  5. DOXYLIN [Concomitant]
     Dates: start: 20090603, end: 20090608
  6. LASIX [Concomitant]
  7. SOMAC [Concomitant]
  8. TRITACE [Concomitant]

REACTIONS (3)
  - DELIRIUM [None]
  - GASTROINTESTINAL DISORDER [None]
  - HALLUCINATION [None]
